FAERS Safety Report 13393017 (Version 1)
Quarter: 2017Q1

REPORT INFORMATION
  Report Type: Report from Study
  Country: US (occurrence: US)
  Receive Date: 20170331
  Receipt Date: 20170331
  Transmission Date: 20170429
  Serious: Yes (Death)
  Sender: FDA-Public Use
  Company Number: US-PFIZER INC-2017139329

PATIENT

DRUGS (5)
  1. CALCIUM FOLINATE [Suspect]
     Active Substance: LEUCOVORIN CALCIUM
     Indication: COLON CANCER
     Dosage: 400 MG/M2 ON DAY 1, CYCLIC
  2. OXALIPLATIN. [Suspect]
     Active Substance: OXALIPLATIN
     Indication: COLON CANCER
     Dosage: 85 MG/M2 ON DAY 1, CYCLIC
  3. FLUOROURACIL. [Suspect]
     Active Substance: FLUOROURACIL
     Indication: COLON CANCER
     Dosage: 400 MG/M2 BOLUS ON DAY 1, CYCLIC
     Route: 042
  4. FLUOROURACIL. [Suspect]
     Active Substance: FLUOROURACIL
     Dosage: 2400 MG/M2, CYCLIC, CONTINOUS INFUSIONAL OVER 46 HRS
     Route: 042
  5. BEVACIZUMAB [Suspect]
     Active Substance: BEVACIZUMAB
     Indication: COLON CANCER
     Dosage: 5 MG/KG ON DAY 1, CYCLIC EVERY 14 DAYS

REACTIONS (1)
  - Sudden death [Fatal]
